FAERS Safety Report 6547099-4 (Version None)
Quarter: 2010Q1

REPORT INFORMATION
  Report Type: 
  Country: None (occurrence: None)
  Receive Date: 20100122
  Receipt Date: 20100111
  Transmission Date: 20100710
  Serious: Yes (Death)
  Sender: FDA-Public Use
  Company Number: US-MERCK-1001USA00917

PATIENT
  Age: 14 Year
  Sex: Female

DRUGS (6)
  1. CANCIDAS [Suspect]
     Indication: ANTIFUNGAL TREATMENT
     Route: 065
  2. CANCIDAS [Suspect]
     Indication: ORAL FUNGAL INFECTION
     Route: 065
  3. AMBISOME [Suspect]
     Route: 065
  4. POSACONAZOLE [Suspect]
     Route: 048
  5. VORICONAZOLE [Suspect]
     Route: 065
  6. ANTINEOPLASTIC (UNSPECIFIED) [Suspect]
     Route: 065

REACTIONS (2)
  - DRUG RESISTANCE [None]
  - RESPIRATORY FAILURE [None]
